FAERS Safety Report 12669709 (Version 1)
Quarter: 2016Q3

REPORT INFORMATION
  Report Type: Spontaneous
  Country: BG (occurrence: BG)
  Receive Date: 20160819
  Receipt Date: 20160819
  Transmission Date: 20161109
  Serious: Yes (Hospitalization)
  Sender: FDA-Public Use
  Company Number: BG-BAYER-2016-157820

PATIENT
  Age: 6 Year
  Sex: Male

DRUGS (2)
  1. KOGENATE [Suspect]
     Active Substance: ANTIHEMOPHILIC FACTOR, HUMAN RECOMBINANT
     Indication: FACTOR VIII DEFICIENCY
     Dosage: 1000 IU, TIW
     Route: 042
  2. KOGENATE [Suspect]
     Active Substance: ANTIHEMOPHILIC FACTOR, HUMAN RECOMBINANT
     Indication: WOUND HAEMORRHAGE
     Dosage: TREATMENT DRUG FOR BLEEDING FROM LEFT KNEE
     Route: 042

REACTIONS (3)
  - Wound haemorrhage [None]
  - Joint injury [None]
  - Accident [None]

NARRATIVE: CASE EVENT DATE: 20160806
